FAERS Safety Report 21566389 (Version 1)
Quarter: 2022Q4

REPORT INFORMATION
  Report Type: Spontaneous
  Country: CA (occurrence: CA)
  Receive Date: 20221108
  Receipt Date: 20221108
  Transmission Date: 20230113
  Serious: Yes (Other)
  Sender: FDA-Public Use
  Company Number: CA-ASPEN-GLO2021CA005838

PATIENT
  Age: 19 Year
  Sex: Female

DRUGS (42)
  1. CARBAMAZEPINE [Suspect]
     Active Substance: CARBAMAZEPINE
     Indication: Complex regional pain syndrome
     Dosage: UNK
     Route: 065
  2. CLONIDINE [Suspect]
     Active Substance: CLONIDINE
     Indication: Complex regional pain syndrome
     Dosage: UNK
     Route: 065
  3. CODEINE PHOSPHATE [Suspect]
     Active Substance: CODEINE PHOSPHATE
     Indication: Complex regional pain syndrome
     Dosage: UNK
     Route: 065
  4. DICLOFENAC [Suspect]
     Active Substance: DICLOFENAC
     Indication: Complex regional pain syndrome
     Dosage: UNK
     Route: 065
  5. HYDROMORPHONE HYDROCHLORIDE [Suspect]
     Active Substance: HYDROMORPHONE HYDROCHLORIDE
     Indication: Complex regional pain syndrome
     Dosage: UNK
     Route: 065
  6. KETOROLAC [Suspect]
     Active Substance: KETOROLAC TROMETHAMINE
     Indication: Complex regional pain syndrome
     Dosage: UNK
     Route: 065
  7. MORPHINE [Suspect]
     Active Substance: MORPHINE
     Indication: Complex regional pain syndrome
     Dosage: UNK
     Route: 065
  8. OXCARBAZEPINE [Suspect]
     Active Substance: OXCARBAZEPINE
     Indication: Complex regional pain syndrome
     Dosage: UNK
     Route: 065
  9. OXYCODONE [Suspect]
     Active Substance: OXYCODONE
     Indication: Complex regional pain syndrome
     Dosage: 10 MG
     Route: 065
  10. VENLAFAXINE HYDROCHLORIDE [Suspect]
     Active Substance: VENLAFAXINE HYDROCHLORIDE
     Indication: Complex regional pain syndrome
     Dosage: UNK
     Route: 065
  11. TOPIRAMATE [Suspect]
     Active Substance: TOPIRAMATE
     Indication: Complex regional pain syndrome
     Dosage: UNK
     Route: 065
  12. LIDOCAINE [Suspect]
     Active Substance: LIDOCAINE
     Indication: Complex regional pain syndrome
     Dosage: UNK (OINTMENT TOPICAL)
     Route: 065
  13. LIDOCAINE [Suspect]
     Active Substance: LIDOCAINE
     Dosage: UNK (OINTMENT)
     Route: 065
  14. LIDOCAINE [Suspect]
     Active Substance: LIDOCAINE
     Dosage: UNK (GEL)
     Route: 065
  15. LIDOCAINE HYDROCHLORIDE [Suspect]
     Active Substance: LIDOCAINE HYDROCHLORIDE
     Indication: Complex regional pain syndrome
     Dosage: UNK
     Route: 065
  16. ACETAMINOPHEN [Suspect]
     Active Substance: ACETAMINOPHEN
     Indication: Complex regional pain syndrome
     Dosage: UNK
     Route: 065
  17. AMITRIPTYLINE [Suspect]
     Active Substance: AMITRIPTYLINE
     Indication: Complex regional pain syndrome
     Dosage: 50 MG
     Route: 065
  18. TRAMADOL [Suspect]
     Active Substance: TRAMADOL
     Indication: Complex regional pain syndrome
     Dosage: UNK
     Route: 065
  19. ASPIRIN [Suspect]
     Active Substance: ASPIRIN
     Indication: Complex regional pain syndrome
     Dosage: UNK
     Route: 065
  20. ROSEMARY [Suspect]
     Active Substance: ROSEMARY
     Indication: Product used for unknown indication
     Dosage: UNK
     Route: 055
  21. BUPROPION [Concomitant]
     Active Substance: BUPROPION
     Indication: Complex regional pain syndrome
     Dosage: UNK
     Route: 065
  22. CAPSICUM [Suspect]
     Active Substance: CAPSICUM
     Indication: Complex regional pain syndrome
     Dosage: UNK
     Route: 065
  23. CELECOXIB [Suspect]
     Active Substance: CELECOXIB
     Indication: Complex regional pain syndrome
     Dosage: UNK
     Route: 065
  24. CITALOPRAM [Suspect]
     Active Substance: CITALOPRAM HYDROBROMIDE
     Indication: Complex regional pain syndrome
     Dosage: UNK
     Route: 065
  25. HERBALS [Suspect]
     Active Substance: HERBALS
     Indication: Complex regional pain syndrome
     Dosage: UNK
     Route: 065
  26. DESIPRAMINE [Suspect]
     Active Substance: DESIPRAMINE
     Indication: Complex regional pain syndrome
     Dosage: UNK
     Route: 065
  27. DEXTROMETHORPHAN [Suspect]
     Active Substance: DEXTROMETHORPHAN
     Indication: Complex regional pain syndrome
     Dosage: UNK
     Route: 065
  28. DULOXETINE HYDROCHLORIDE [Suspect]
     Active Substance: DULOXETINE HYDROCHLORIDE
     Indication: Complex regional pain syndrome
     Dosage: UNK
     Route: 065
  29. EUCALYPTUS GLOBULUS LEAF [Suspect]
     Active Substance: EUCALYPTUS GLOBULUS LEAF
     Indication: Complex regional pain syndrome
     Dosage: UNK
     Route: 055
  30. FENTANYL [Suspect]
     Active Substance: FENTANYL
     Indication: Complex regional pain syndrome
     Dosage: UNK
     Route: 062
  31. GABAPENTIN [Suspect]
     Active Substance: GABAPENTIN
     Indication: Complex regional pain syndrome
     Dosage: UNK
     Route: 065
  32. IBUPROFEN [Suspect]
     Active Substance: IBUPROFEN
     Indication: Complex regional pain syndrome
     Dosage: UNK
     Route: 065
  33. KETAMINE [Suspect]
     Active Substance: KETAMINE
     Indication: Complex regional pain syndrome
     Dosage: 25 MG 2 EVERY 1 DAYS
     Route: 048
  34. LAVENDER OIL [Suspect]
     Active Substance: LAVENDER OIL
     Indication: Complex regional pain syndrome
     Dosage: UNK
     Route: 065
  35. MEMANTINE [Suspect]
     Active Substance: MEMANTINE
     Indication: Complex regional pain syndrome
     Dosage: UNK
     Route: 065
  36. METHADONE [Suspect]
     Active Substance: METHADONE HYDROCHLORIDE
     Indication: Complex regional pain syndrome
     Dosage: UNK
     Route: 065
  37. MEXILETINE [Suspect]
     Active Substance: MEXILETINE
     Indication: Complex regional pain syndrome
     Dosage: UNK
     Route: 065
  38. NAPROXEN [Suspect]
     Active Substance: NAPROXEN
     Indication: Complex regional pain syndrome
     Dosage: UNK
     Route: 065
  39. NORTRIPTYLINE [Suspect]
     Active Substance: NORTRIPTYLINE
     Indication: Complex regional pain syndrome
     Dosage: UNK (CAPSULE)
     Route: 065
  40. NORTRIPTYLINE [Suspect]
     Active Substance: NORTRIPTYLINE
     Dosage: UNK
     Route: 065
  41. PREGABALIN [Suspect]
     Active Substance: PREGABALIN
     Indication: Complex regional pain syndrome
     Dosage: UNK
     Route: 065
  42. PREGABALIN [Suspect]
     Active Substance: PREGABALIN
     Dosage: UNK (CAPSULE)
     Route: 065

REACTIONS (4)
  - Immune thrombocytopenia [Unknown]
  - Weight increased [Unknown]
  - Therapy non-responder [Unknown]
  - Off label use [Unknown]
